FAERS Safety Report 7573412-5 (Version None)
Quarter: 2011Q2

REPORT INFORMATION
  Report Type: 
  Country: None (occurrence: None)
  Receive Date: 20110627
  Receipt Date: 20110504
  Transmission Date: 20111010
  Serious: No
  Sender: FDA-Public Use
  Company Number: A0925796A

PATIENT
  Age: 27 Year
  Sex: Male

DRUGS (3)
  1. LAMICTAL [Suspect]
     Dosage: 25MG PER DAY
     Route: 048
     Dates: start: 20110428, end: 20110429
  2. ATIVAN [Concomitant]
  3. LEVETIRACETAM [Concomitant]

REACTIONS (2)
  - RASH [None]
  - PRURITUS GENERALISED [None]
